FAERS Safety Report 10025569 (Version 1)
Quarter: 2014Q1

REPORT INFORMATION
  Report Type: Spontaneous
  Country: JP (occurrence: JP)
  Receive Date: 20140320
  Receipt Date: 20140320
  Transmission Date: 20141002
  Serious: Yes (Other)
  Sender: FDA-Public Use
  Company Number: JP-UCBSA-114762

PATIENT
  Age: 92 Year
  Sex: Male

DRUGS (1)
  1. XYZAL [Suspect]
     Route: 048

REACTIONS (1)
  - Dementia [Unknown]
